FAERS Safety Report 17457889 (Version 1)
Quarter: 2020Q1

REPORT INFORMATION
  Report Type: Spontaneous
  Country: US (occurrence: US)
  Receive Date: 20200225
  Receipt Date: 20200225
  Transmission Date: 20200409
  Serious: Yes (Other)
  Sender: FDA-Public Use
  Company Number: US-PFIZER INC-2018054371

PATIENT
  Age: 81 Year
  Sex: Female
  Weight: 87.53 kg

DRUGS (5)
  1. IBRANCE [Suspect]
     Active Substance: PALBOCICLIB
     Indication: BREAST CANCER METASTATIC
     Dosage: 75 MG, CYCLIC (ONCE A DAY FOR 21 DAYS AND THEN 7 DAYS REST)
     Route: 048
     Dates: start: 201812
  2. ASPIRIN. [Concomitant]
     Active Substance: ASPIRIN
     Dosage: 81 MG, UNK
  3. CALCIUM + D3 [CALCIUM;COLECALCIFEROL] [Concomitant]
     Dosage: UNK (CALCIUM: 600 MG / VITAMIN D3: 500 MG)
  4. VITAMIN B12 [Concomitant]
     Active Substance: CYANOCOBALAMIN
     Dosage: 2500 UG, UNK
  5. FISH OIL-OMEGA-3-VIT D [Concomitant]
     Dosage: UNK UNK, 1X/DAY

REACTIONS (2)
  - Haemoglobin decreased [Unknown]
  - Sepsis [Unknown]
